FAERS Safety Report 23262359 (Version 2)
Quarter: 2023Q4

REPORT INFORMATION
  Report Type: Spontaneous
  Country: US (occurrence: US)
  Receive Date: 20231205
  Receipt Date: 20231228
  Transmission Date: 20240110
  Serious: Yes (Hospitalization, Other)
  Sender: FDA-Public Use
  Company Number: US-BAYER-2023A172674

PATIENT
  Age: 60 Year
  Sex: Female

DRUGS (1)
  1. ALKA-SELTZER ORIGINAL FLAVOR [Suspect]
     Active Substance: ASPIRIN
     Indication: Pain
     Dosage: 2 DF, Q72HR
     Route: 048
     Dates: start: 20230704

REACTIONS (9)
  - Cerebrovascular accident [Recovered/Resolved with Sequelae]
  - Hospitalisation [Recovered/Resolved]
  - Amnesia [Not Recovered/Not Resolved]
  - Blood pressure increased [Not Recovered/Not Resolved]
  - Headache [Not Recovered/Not Resolved]
  - Muscular weakness [Not Recovered/Not Resolved]
  - Expired product administered [None]
  - Blood glucose increased [Unknown]
  - Product colour issue [None]

NARRATIVE: CASE EVENT DATE: 20230704
